FAERS Safety Report 25273878 (Version 4)
Quarter: 2025Q3

REPORT INFORMATION
  Report Type: Spontaneous
  Country: US (occurrence: US)
  Receive Date: 20250506
  Receipt Date: 20250722
  Transmission Date: 20251021
  Serious: No
  Sender: PFIZER
  Company Number: US-PFIZER INC-202500075480

PATIENT
  Age: 73 Year
  Sex: Female
  Weight: 96.62 kg

DRUGS (8)
  1. GENOTROPIN [Suspect]
     Active Substance: SOMATROPIN
     Indication: Hypothalamo-pituitary disorder
     Dosage: 0.2 MG, 7 DAYS/WEEK
     Dates: start: 202503
  2. GENOTROPIN [Suspect]
     Active Substance: SOMATROPIN
  3. ARMOUR THYROID [Concomitant]
     Active Substance: THYROID, PORCINE
  4. LISINOPRIL [Concomitant]
     Active Substance: LISINOPRIL
  5. LOVASTATIN [Concomitant]
     Active Substance: LOVASTATIN
  6. MELOXICAM [Concomitant]
     Active Substance: MELOXICAM
  7. DULOXETINE HYDROCHLORIDE [Concomitant]
     Active Substance: DULOXETINE HYDROCHLORIDE
  8. ASPIRIN [Concomitant]
     Active Substance: ASPIRIN

REACTIONS (7)
  - Malaise [Unknown]
  - Device difficult to use [Unknown]
  - Device leakage [Unknown]
  - Poor quality device used [Unknown]
  - Drug dose omission by device [Unknown]
  - Device breakage [Unknown]
  - Device use error [Unknown]
